FAERS Safety Report 11370500 (Version 2)
Quarter: 2015Q3

REPORT INFORMATION
  Report Type: Spontaneous
  Country: US (occurrence: US)
  Receive Date: 20150812
  Receipt Date: 20150819
  Transmission Date: 20151125
  Serious: No
  Sender: FDA-Public Use
  Company Number: US-009507513-1508USA004342

PATIENT
  Age: 81 Year
  Sex: Female

DRUGS (1)
  1. PROVENTIL [Suspect]
     Active Substance: ALBUTEROL
     Indication: PNEUMONIA
     Dosage: TWO PUFFS EVERY FOUR HOUR AS NEEDED
     Route: 055
     Dates: start: 20150806

REACTIONS (3)
  - Respiratory disorder [Unknown]
  - Product quality issue [Unknown]
  - Drug administration error [Unknown]

NARRATIVE: CASE EVENT DATE: 201508
